FAERS Safety Report 10873498 (Version 2)
Quarter: 2015Q3

REPORT INFORMATION
  Report Type: Spontaneous
  Country: CH (occurrence: CH)
  Receive Date: 20150227
  Receipt Date: 20150911
  Transmission Date: 20151125
  Serious: Yes (Life-Threatening, Other)
  Sender: FDA-Public Use
  Company Number: CH-AMGEN-CHESP2015017945

PATIENT
  Age: 37 Year
  Sex: Male
  Weight: 120 kg

DRUGS (4)
  1. LYRICA [Concomitant]
     Active Substance: PREGABALIN
     Indication: PARTIAL SEIZURES WITH SECONDARY GENERALISATION
     Dosage: 100 MG, 2X/DAY
     Route: 048
  2. VALPROAT SANDOZ [Concomitant]
     Indication: PARTIAL SEIZURES WITH SECONDARY GENERALISATION
     Dosage: 500 MG, 2X/DAY
     Route: 048
  3. ENBREL [Suspect]
     Active Substance: ETANERCEPT
     Indication: ANKYLOSING SPONDYLITIS
     Dosage: 50 MG, SINGLE
     Route: 058
     Dates: start: 20141125, end: 20150528
  4. TOPAMAX [Concomitant]
     Active Substance: TOPIRAMATE
     Indication: PARTIAL SEIZURES WITH SECONDARY GENERALISATION
     Dosage: 50 MG, 2X/DAY
     Route: 048

REACTIONS (3)
  - Epilepsy [Recovered/Resolved]
  - Condition aggravated [Recovered/Resolved]
  - Epilepsy [Recovered/Resolved]

NARRATIVE: CASE EVENT DATE: 20141125
